FAERS Safety Report 21265737 (Version 1)
Quarter: 2022Q3

REPORT INFORMATION
  Report Type: Report from Study
  Country: US (occurrence: US)
  Receive Date: 20220829
  Receipt Date: 20220829
  Transmission Date: 20221027
  Serious: Yes (Hospitalization, Other)
  Sender: FDA-Public Use
  Company Number: US-SANOFI-01228331

PATIENT
  Age: 51 Year
  Sex: Male

DRUGS (2)
  1. DUPILUMAB [Suspect]
     Active Substance: DUPILUMAB
     Indication: Dermatitis atopic
     Dosage: 600 MG, 1X
     Route: 058
     Dates: start: 2022, end: 2022
  2. DUPILUMAB [Suspect]
     Active Substance: DUPILUMAB
     Dosage: 300 MG QOW
     Route: 058
     Dates: start: 2022

REACTIONS (9)
  - Pneumonia [Not Recovered/Not Resolved]
  - Superinfection viral [Not Recovered/Not Resolved]
  - Fatigue [Not Recovered/Not Resolved]
  - Superinfection bacterial [Not Recovered/Not Resolved]
  - Chest discomfort [Not Recovered/Not Resolved]
  - Atrioventricular block [Not Recovered/Not Resolved]
  - COVID-19 [Not Recovered/Not Resolved]
  - Herpes virus infection [Not Recovered/Not Resolved]
  - Oral herpes [Not Recovered/Not Resolved]

NARRATIVE: CASE EVENT DATE: 20220101
